FAERS Safety Report 7987022-9 (Version None)
Quarter: 2011Q4

REPORT INFORMATION
  Report Type: 
  Country: None (occurrence: None)
  Receive Date: 20111216
  Receipt Date: 20110310
  Transmission Date: 20120403
  Serious: No
  Sender: FDA-Public Use
  Company Number: US-BRISTOL-MYERS SQUIBB COMPANY-15603111

PATIENT
  Age: 6 Year
  Sex: Male

DRUGS (6)
  1. VYVANSE [Suspect]
     Indication: MOOD SWINGS
  2. ADDERALL 5 [Suspect]
     Indication: ATTENTION DEFICIT/HYPERACTIVITY DISORDER
  3. VYVANSE [Suspect]
     Indication: ATTENTION DEFICIT/HYPERACTIVITY DISORDER
  4. ABILIFY [Suspect]
     Indication: ATTENTION DEFICIT/HYPERACTIVITY DISORDER
  5. ABILIFY [Suspect]
     Indication: MOOD SWINGS
  6. ADDERALL 5 [Suspect]
     Indication: MOOD SWINGS

REACTIONS (1)
  - DYSTONIA [None]
